FAERS Safety Report 5412703-0 (Version None)
Quarter: 2007Q3

REPORT INFORMATION
  Report Type: 
  Country: None (occurrence: None)
  Receive Date: 20070809
  Receipt Date: 20070724
  Transmission Date: 20080115
  Serious: Yes (Other)
  Sender: FDA-Public Use
  Company Number: 001#1#2007-00500

PATIENT

DRUGS (1)
  1. ALPROSTADIL [Suspect]
     Indication: PERIPHERAL ARTERIAL OCCLUSIVE DISEASE
     Dosage: INTRAVENOUS
     Route: 042

REACTIONS (4)
  - CHILLS [None]
  - INFLAMMATION [None]
  - PYREXIA [None]
  - SEPSIS [None]
